FAERS Safety Report 21216420 (Version 1)
Quarter: 2022Q3

REPORT INFORMATION
  Report Type: Report from Study
  Country: CA (occurrence: CA)
  Receive Date: 20220816
  Receipt Date: 20220816
  Transmission Date: 20221027
  Serious: Yes (Other)
  Sender: FDA-Public Use
  Company Number: CA-TAKEDA-2022TUS054120

PATIENT
  Age: 14 Year
  Sex: Male

DRUGS (1)
  1. LISDEXAMFETAMINE DIMESYLATE [Suspect]
     Active Substance: LISDEXAMFETAMINE DIMESYLATE
     Indication: Attention deficit hyperactivity disorder
     Dosage: 60 MILLIGRAM, QD
     Route: 048
     Dates: end: 20220803

REACTIONS (4)
  - Paediatric acute-onset neuropsychiatric syndrome [Unknown]
  - Oppositional defiant disorder [Unknown]
  - Obsessive-compulsive disorder [Unknown]
  - Product dose omission issue [Unknown]
